FAERS Safety Report 25632494 (Version 1)
Quarter: 2025Q3

REPORT INFORMATION
  Report Type: Spontaneous
  Country: US (occurrence: US)
  Receive Date: 20250801
  Receipt Date: 20250801
  Transmission Date: 20251021
  Serious: Yes (Other)
  Sender: MYLAN
  Company Number: US-MYLANLABS-2025M1063955

PATIENT
  Age: 68 Year
  Sex: Male

DRUGS (16)
  1. BUPRENORPHINE [Suspect]
     Active Substance: BUPRENORPHINE
     Indication: Back pain
  2. BUPRENORPHINE [Suspect]
     Active Substance: BUPRENORPHINE
     Route: 065
  3. BUPRENORPHINE [Suspect]
     Active Substance: BUPRENORPHINE
     Route: 065
  4. BUPRENORPHINE [Suspect]
     Active Substance: BUPRENORPHINE
  5. NALOXONE [Suspect]
     Active Substance: NALOXONE
     Indication: Back pain
     Dosage: 1 MILLIGRAM, QID
  6. NALOXONE [Suspect]
     Active Substance: NALOXONE
     Dosage: 1 MILLIGRAM, QID
     Route: 065
  7. NALOXONE [Suspect]
     Active Substance: NALOXONE
     Dosage: 1 MILLIGRAM, QID
     Route: 065
  8. NALOXONE [Suspect]
     Active Substance: NALOXONE
     Dosage: 1 MILLIGRAM, QID
  9. GABAPENTIN [Concomitant]
     Active Substance: GABAPENTIN
     Indication: Product used for unknown indication
  10. GABAPENTIN [Concomitant]
     Active Substance: GABAPENTIN
     Route: 065
  11. GABAPENTIN [Concomitant]
     Active Substance: GABAPENTIN
     Route: 065
  12. GABAPENTIN [Concomitant]
     Active Substance: GABAPENTIN
  13. TRAZODONE [Concomitant]
     Active Substance: TRAZODONE HYDROCHLORIDE
     Indication: Product used for unknown indication
  14. TRAZODONE [Concomitant]
     Active Substance: TRAZODONE HYDROCHLORIDE
     Route: 065
  15. TRAZODONE [Concomitant]
     Active Substance: TRAZODONE HYDROCHLORIDE
     Route: 065
  16. TRAZODONE [Concomitant]
     Active Substance: TRAZODONE HYDROCHLORIDE

REACTIONS (2)
  - Hypercapnia [Recovering/Resolving]
  - Off label use [Unknown]
